FAERS Safety Report 19037444 (Version 4)
Quarter: 2021Q2

REPORT INFORMATION
  Report Type: Spontaneous
  Country: JP (occurrence: JP)
  Receive Date: 20210322
  Receipt Date: 20210629
  Transmission Date: 20210717
  Serious: Yes (Hospitalization, Other)
  Sender: FDA-Public Use
  Company Number: JP-AMGEN-JPNSP2021043734

PATIENT
  Age: 77 Year
  Sex: Male
  Weight: 40.6 kg

DRUGS (19)
  1. MAGNESIUM SULFATE. [Concomitant]
     Active Substance: MAGNESIUM SULFATE
     Indication: HYPOMAGNESAEMIA
     Dosage: 20 MILLIEQUIVALENT, Q2WEEKS
     Route: 042
     Dates: start: 20201208, end: 20210216
  2. FERROUS CITRATE NA [Concomitant]
     Active Substance: SODIUM FERROUS CITRATE
     Indication: ANAEMIA
     Dosage: 50 MILLIGRAM, QD
     Route: 048
     Dates: start: 20201224, end: 20210401
  3. VECTIBIX [Suspect]
     Active Substance: PANITUMUMAB
     Indication: COLON CANCER
     Dosage: 200 MILLIGRAM, Q2WK
     Route: 041
     Dates: start: 20210105, end: 20210302
  4. LEVOFOLINATE [CALCIUM LEVOFOLINATE] [Suspect]
     Active Substance: LEVOLEUCOVORIN CALCIUM
     Indication: PRODUCT USED FOR UNKNOWN INDICATION
     Dosage: 240 MILLIGRAM, Q2WEEKS
     Route: 041
     Dates: start: 20201208
  5. CALCIUM GLUCONATE. [Concomitant]
     Active Substance: CALCIUM GLUCONATE
     Indication: PRODUCT USED FOR UNKNOWN INDICATION
     Dosage: 10 MILLILITER, Q2WEEKS
     Route: 042
     Dates: start: 20201208
  6. FLUOROURACIL. [Suspect]
     Active Substance: FLUOROURACIL
     Dosage: 360 MILLIGRAM, Q2WK
     Route: 040
     Dates: start: 20210105
  7. PALONOSETRON HYDROCHLORIDE. [Concomitant]
     Active Substance: PALONOSETRON HYDROCHLORIDE
     Indication: PRODUCT USED FOR UNKNOWN INDICATION
     Dosage: 0.75 MILLIGRAM, Q2WEEKS
     Route: 042
     Dates: start: 20201208
  8. MAGNESIUM SULFATE. [Concomitant]
     Active Substance: MAGNESIUM SULFATE
     Dosage: 20 MILLIEQUIVALENT, Q2WEEKS
     Route: 042
     Dates: start: 20210302
  9. CLOSTRIDIUM BUTYRICUM [Concomitant]
     Active Substance: CLOSTRIDIUM BUTYRICUM SPORES STRAIN M-55
     Dosage: 40 MILLIGRAM, TID
     Route: 048
     Dates: start: 20201203
  10. DEXAMETHASONE SODIUM PHOSPHATE. [Concomitant]
     Active Substance: DEXAMETHASONE SODIUM PHOSPHATE
     Indication: PRODUCT USED FOR UNKNOWN INDICATION
     Dosage: 6.6 MILLIGRAM, Q2WEEKS
     Route: 042
     Dates: start: 20201208
  11. FLUOROURACIL. [Suspect]
     Active Substance: FLUOROURACIL
     Dosage: 2800 MILLIGRAM, Q2WEEKS
     Route: 041
     Dates: start: 20201208, end: 20201209
  12. OXALIPLATIN. [Suspect]
     Active Substance: OXALIPLATIN
     Indication: PRODUCT USED FOR UNKNOWN INDICATION
     Dosage: 100 MILLIGRAM, Q2WEEKS
     Route: 041
     Dates: start: 20201208, end: 20201208
  13. OXALIPLATIN. [Suspect]
     Active Substance: OXALIPLATIN
     Dosage: 70 MILLIGRAM, Q2WEEKS
     Route: 041
     Dates: start: 20210105
  14. FLUOROURACIL. [Suspect]
     Active Substance: FLUOROURACIL
     Indication: PRODUCT USED FOR UNKNOWN INDICATION
     Dosage: 450 MILLIGRAM, Q2WEEKS
     Route: 040
     Dates: start: 20201208, end: 20201208
  15. APREPITANT. [Concomitant]
     Active Substance: APREPITANT
     Indication: PRODUCT USED FOR UNKNOWN INDICATION
     Dosage: 125 MILLIGRAM, Q2WEEKS
     Route: 048
     Dates: start: 20201208, end: 20201208
  16. APREPITANT. [Concomitant]
     Active Substance: APREPITANT
     Dosage: 80. MILLIGRAM, Q2WEEKS
     Route: 048
     Dates: start: 20201209
  17. RABEPRAZOLE NA [Concomitant]
     Active Substance: RABEPRAZOLE SODIUM
     Dosage: 10 MILLIGRAM, QD
     Route: 048
     Dates: start: 20201113
  18. VECTIBIX [Suspect]
     Active Substance: PANITUMUMAB
     Dosage: 180 MILLIGRAM, Q2WK
     Route: 041
     Dates: start: 20210330, end: 20210330
  19. FLUOROURACIL. [Suspect]
     Active Substance: FLUOROURACIL
     Dosage: 2400 MILLIGRAM, Q2WEEKS
     Route: 041
     Dates: start: 20210105

REACTIONS (4)
  - Skin disorder [Unknown]
  - Myelosuppression [Recovered/Resolved]
  - Stoma site haemorrhage [Recovering/Resolving]
  - Stoma site oedema [Recovering/Resolving]

NARRATIVE: CASE EVENT DATE: 20210307
